FAERS Safety Report 12616878 (Version 3)
Quarter: 2021Q2

REPORT INFORMATION
  Report Type: Spontaneous
  Country: US (occurrence: US)
  Receive Date: 20160802
  Receipt Date: 20210529
  Transmission Date: 20210716
  Serious: Yes (Hospitalization, Other)
  Sender: FDA-Public Use
  Company Number: US-JNJFOC-20160719468

PATIENT
  Age: 37 Year
  Sex: Female
  Weight: 57 kg

DRUGS (3)
  1. IBUPROFEN. [Concomitant]
     Active Substance: IBUPROFEN
     Indication: PRODUCT USED FOR UNKNOWN INDICATION
     Dosage: 600 MG DAILY FOR 30 DAYS
     Route: 065
     Dates: end: 20000409
  2. PARACETAMOL [Suspect]
     Active Substance: ACETAMINOPHEN
     Indication: PRODUCT USED FOR UNKNOWN INDICATION
     Dosage: TOTAL DOSE 12000 MG, 4 G/DAY FOR 3 DAYS
     Route: 065
     Dates: end: 20000413
  3. PAXIL [Concomitant]
     Active Substance: PAROXETINE HYDROCHLORIDE
     Indication: PRODUCT USED FOR UNKNOWN INDICATION
     Dosage: 20 MG/DAY TAKEN FOR 60 DAYS
     Route: 065
     Dates: end: 19991001

REACTIONS (2)
  - Acute hepatic failure [Recovered/Resolved]
  - Overdose [Recovering/Resolving]

NARRATIVE: CASE EVENT DATE: 20000413
